FAERS Safety Report 23406844 (Version 2)
Quarter: 2024Q1

REPORT INFORMATION
  Report Type: Spontaneous
  Country: RU (occurrence: None)
  Receive Date: 20240116
  Receipt Date: 20240122
  Transmission Date: 20240410
  Serious: Yes (Hospitalization, Other)
  Sender: FDA-Public Use
  Company Number: 2024A010492

PATIENT
  Sex: Male

DRUGS (8)
  1. CRESTOR [Suspect]
     Active Substance: ROSUVASTATIN CALCIUM
     Route: 048
     Dates: start: 2009
  2. CRESTOR [Suspect]
     Active Substance: ROSUVASTATIN CALCIUM
     Route: 048
     Dates: start: 2017
  3. CRESTOR [Suspect]
     Active Substance: ROSUVASTATIN CALCIUM
     Route: 048
     Dates: start: 2019
  4. RAMIPRIL [Concomitant]
     Active Substance: RAMIPRIL
  5. AMLODIPINE [Concomitant]
     Active Substance: AMLODIPINE BESYLATE
  6. ATORVASTATIN [Concomitant]
     Active Substance: ATORVASTATIN
  7. EZETIMIBE [Concomitant]
     Active Substance: EZETIMIBE
  8. INCLISIRAN [Concomitant]
     Active Substance: INCLISIRAN
     Route: 058

REACTIONS (4)
  - Drug ineffective [Unknown]
  - Coronary artery stenosis [Unknown]
  - Arteriosclerosis [Unknown]
  - Acute coronary syndrome [Unknown]
